FAERS Safety Report 6075413-5 (Version None)
Quarter: 2009Q1

REPORT INFORMATION
  Report Type: 
  Country: None (occurrence: None)
  Receive Date: 20090209
  Receipt Date: 20090204
  Transmission Date: 20090719
  Serious: Yes (Other)
  Sender: FDA-Public Use
  Company Number: 2009SP001676

PATIENT
  Age: 38 Year
  Sex: Female
  Weight: 81.6475 kg

DRUGS (2)
  1. MIRALAX [Suspect]
     Indication: CONSTIPATION
     Dosage: 17 GM;ONCE;PO
     Route: 048
     Dates: start: 20090117, end: 20090117
  2. MIRALAX [Suspect]
     Indication: DRUG USE FOR UNKNOWN INDICATION
     Dosage: 17 GM;ONCE;PO
     Route: 048
     Dates: start: 20090117, end: 20090117

REACTIONS (9)
  - CHEST DISCOMFORT [None]
  - DRUG EFFECT DECREASED [None]
  - DYSPNOEA [None]
  - GINGIVAL SWELLING [None]
  - NO REACTION ON PREVIOUS EXPOSURE TO DRUG [None]
  - PARAESTHESIA ORAL [None]
  - THROAT TIGHTNESS [None]
  - URTICARIA [None]
  - WHITE BLOOD CELL COUNT INCREASED [None]
